FAERS Safety Report 14786524 (Version 2)
Quarter: 2018Q2

REPORT INFORMATION
  Report Type: Report from Study
  Country: US (occurrence: US)
  Receive Date: 20180421
  Receipt Date: 20180511
  Transmission Date: 20180711
  Serious: Yes (Hospitalization)
  Sender: FDA-Public Use
  Company Number: US-VIFOR (INTERNATIONAL) INC.-VIT-2018-03660

PATIENT
  Age: 47 Year
  Sex: Male
  Weight: 90 kg

DRUGS (17)
  1. VELTASSA [Suspect]
     Active Substance: PATIROMER
     Indication: HYPERKALAEMIA
     Route: 048
     Dates: start: 20170531, end: 201804
  2. GLIPIZIDE. [Concomitant]
     Active Substance: GLIPIZIDE
  3. LOSARTAN POTASSIUM. [Concomitant]
     Active Substance: LOSARTAN POTASSIUM
  4. GABAPENTIN. [Concomitant]
     Active Substance: GABAPENTIN
  5. SEVELAMER [Concomitant]
     Active Substance: SEVELAMER
  6. SIMVASTATIN. [Concomitant]
     Active Substance: SIMVASTATIN
  7. CHLORTALIDONE [Concomitant]
     Active Substance: CHLORTHALIDONE
  8. ACETYLSALICYLIC ACID [Concomitant]
     Active Substance: ASPIRIN
  9. BUMETANIDE. [Concomitant]
     Active Substance: BUMETANIDE
  10. MIDODRINE [Concomitant]
     Active Substance: MIDODRINE
  11. CARVEDILOL. [Concomitant]
     Active Substance: CARVEDILOL
  12. ERGOCALCIFEROL. [Concomitant]
     Active Substance: ERGOCALCIFEROL
  13. IBUPROFEN. [Concomitant]
     Active Substance: IBUPROFEN
  14. BACLOFEN. [Concomitant]
     Active Substance: BACLOFEN
  15. MECLIZINE [Concomitant]
     Active Substance: MECLIZINE HYDROCHLORIDE
  16. FERROUS SULFATE. [Concomitant]
     Active Substance: FERROUS SULFATE
  17. LEVOTHYROXINE SODIUM. [Concomitant]
     Active Substance: LEVOTHYROXINE SODIUM

REACTIONS (1)
  - Thrombosis [Recovered/Resolved]

NARRATIVE: CASE EVENT DATE: 20180326
